FAERS Safety Report 17088642 (Version 1)
Quarter: 2019Q4

REPORT INFORMATION
  Report Type: Spontaneous
  Country: US (occurrence: US)
  Receive Date: 20191031
  Receipt Date: 20191031
  Transmission Date: 20200122
  Serious: No
  Sender: FDA-Public Use
  Company Number: None

PATIENT
  Sex: Female

DRUGS (1)
  1. HUMIRA [Suspect]
     Active Substance: ADALIMUMAB
     Indication: PSORIASIS
     Dosage: ?          OTHER DOSE:80/40MG;OTHER FREQUENCY:80MG OD1, 40MG OD8;?
     Route: 058
     Dates: start: 20190927

REACTIONS (2)
  - Arthralgia [None]
  - Pain in extremity [None]
